FAERS Safety Report 21785373 (Version 1)
Quarter: 2022Q4

REPORT INFORMATION
  Report Type: Spontaneous
  Country: FR (occurrence: FR)
  Receive Date: 20221227
  Receipt Date: 20221227
  Transmission Date: 20230112
  Serious: Yes (Other)
  Sender: FDA-Public Use
  Company Number: FR-ALLERGAN-2241860US

PATIENT
  Sex: Male

DRUGS (1)
  1. BIMATOPROST\TIMOLOL [Suspect]
     Active Substance: BIMATOPROST\TIMOLOL
     Indication: Glaucoma
     Dosage: 1 GTT, QPM
     Route: 047
     Dates: start: 2022

REACTIONS (5)
  - Cardiac pacemaker insertion [Unknown]
  - Malaise [Unknown]
  - Amnesia [Unknown]
  - Insomnia [Unknown]
  - Bradycardia [Unknown]

NARRATIVE: CASE EVENT DATE: 20220101
